FAERS Safety Report 6458945 (Version 13)
Quarter: 2016Q2

REPORT INFORMATION
  Report Type: Report from Study
  Country: FR (occurrence: FR)
  Receive Date: 20071105
  Receipt Date: 20160408
  Transmission Date: 20160815
  Serious: Yes (Life-Threatening, Hospitalization, Other)
  Sender: FDA-Public Use
  Company Number: PHHO2006FR07535

PATIENT
  Age: 52 Year
  Sex: Female
  Weight: 70 kg

DRUGS (1)
  1. CGS 20267 [Suspect]
     Active Substance: LETROZOLE
     Indication: BREAST CANCER
     Dosage: 2.5 MG, QD
     Route: 048
     Dates: start: 20011003, end: 20060517

REACTIONS (32)
  - Cardiomegaly [Recovering/Resolving]
  - Azotaemia [Unknown]
  - Cardiac disorder [Recovering/Resolving]
  - Weight increased [Not Recovered/Not Resolved]
  - Congestive cardiomyopathy [Recovering/Resolving]
  - Mitral valve incompetence [Not Recovered/Not Resolved]
  - Oedema peripheral [Recovered/Resolved]
  - Panic attack [Recovered/Resolved]
  - Sinus tachycardia [Recovering/Resolving]
  - Cardiac murmur [Recovering/Resolving]
  - Blood creatinine abnormal [Recovered/Resolved]
  - Asthenia [Not Recovered/Not Resolved]
  - Epistaxis [Recovered/Resolved]
  - Brain natriuretic peptide increased [Not Recovered/Not Resolved]
  - Atrial hypertrophy [Recovering/Resolving]
  - Tricuspid valve incompetence [Not Recovered/Not Resolved]
  - Dyspnoea [Not Recovered/Not Resolved]
  - Balance disorder [Unknown]
  - Pulmonary arterial hypertension [Recovering/Resolving]
  - Left ventricular hypertrophy [Recovering/Resolving]
  - Heart rate decreased [Unknown]
  - Gingival bleeding [Recovered/Resolved]
  - Anxiety [Unknown]
  - Ventricular dysfunction [Recovering/Resolving]
  - Cardiac index decreased [Unknown]
  - Renal failure [Recovered/Resolved]
  - Hot flush [Recovered/Resolved]
  - Cardiotoxicity [Recovering/Resolving]
  - Vertigo [Recovered/Resolved]
  - Rales [Recovered/Resolved]
  - Hypokinesia [Recovering/Resolving]
  - Chest discomfort [Recovering/Resolving]

NARRATIVE: CASE EVENT DATE: 20060106
